FAERS Safety Report 21125155 (Version 1)
Quarter: 2022Q3

REPORT INFORMATION
  Report Type: Spontaneous
  Country: PT (occurrence: PT)
  Receive Date: 20220725
  Receipt Date: 20220725
  Transmission Date: 20221027
  Serious: Yes (Hospitalization)
  Sender: FDA-Public Use
  Company Number: None

PATIENT
  Age: 77 Year
  Sex: Male
  Weight: 95 kg

DRUGS (4)
  1. ENCORAFENIB [Suspect]
     Active Substance: ENCORAFENIB
     Indication: Malignant melanoma
     Dosage: 450MG, 1X/DAY, 24 HOURS, MUTATED BRAF MELANOMA
     Route: 048
     Dates: start: 20220512, end: 20220530
  2. BINIMETINIB [Suspect]
     Active Substance: BINIMETINIB
     Indication: Malignant melanoma
     Dosage: 45MG, 2X/DAY, MUTATED BRAF MELANOMA
     Route: 048
     Dates: start: 20220512, end: 20220530
  3. BRISOMAX DISKUS [Concomitant]
     Dosage: 250 UG/DOSE + 50 UG/DOSE, INHALATION POWDER IN A UNIDOSE CONTAINER
     Route: 065
  4. PERINDOPRIL [Concomitant]
     Active Substance: PERINDOPRIL
     Dosage: UNK
     Route: 065

REACTIONS (1)
  - Small intestinal haemorrhage [Recovered/Resolved]

NARRATIVE: CASE EVENT DATE: 20220530
